FAERS Safety Report 12831625 (Version 2)
Quarter: 2017Q1

REPORT INFORMATION
  Report Type: Spontaneous
  Country: CA (occurrence: CA)
  Receive Date: 20161009
  Receipt Date: 20170120
  Transmission Date: 20170428
  Serious: Yes (Other)
  Sender: FDA-Public Use
  Company Number: CA-CONCORDIA PHARMACEUTICALS INC.-GSH201610-005046

PATIENT
  Age: 72 Year
  Sex: Male

DRUGS (19)
  1. METHOTREXATE. [Suspect]
     Active Substance: METHOTREXATE
     Indication: RHEUMATOID ARTHRITIS
     Route: 058
  2. ASA [Concomitant]
     Active Substance: ASPIRIN
  3. VITAMIN B12 [Concomitant]
     Active Substance: CYANOCOBALAMIN
     Dates: end: 20160321
  4. PENNSAID [Concomitant]
     Active Substance: DICLOFENAC SODIUM
  5. OXYCOCET [Concomitant]
     Active Substance: ACETAMINOPHEN\OXYCODONE HYDROCHLORIDE
  6. PLAQUENIL [Suspect]
     Active Substance: HYDROXYCHLOROQUINE SULFATE
     Indication: PRODUCT USED FOR UNKNOWN INDICATION
     Route: 065
     Dates: start: 201111, end: 201204
  7. ARAVA [Suspect]
     Active Substance: LEFLUNOMIDE
     Indication: PRODUCT USED FOR UNKNOWN INDICATION
     Route: 065
  8. ENBREL [Suspect]
     Active Substance: ETANERCEPT
     Indication: RHEUMATOID ARTHRITIS
     Route: 065
  9. FOLIC ACID. [Concomitant]
     Active Substance: FOLIC ACID
  10. LAX A DAY [Concomitant]
  11. PREDNISONE. [Concomitant]
     Active Substance: PREDNISONE
  12. INDOMETHACIN. [Concomitant]
     Active Substance: INDOMETHACIN
  13. ENDOCET [Concomitant]
     Active Substance: ACETAMINOPHEN\OXYCODONE HYDROCHLORIDE
     Dates: end: 20160321
  14. NAPRELAN [Concomitant]
     Active Substance: NAPROXEN SODIUM
  15. METOPROLOL. [Concomitant]
     Active Substance: METOPROLOL
  16. OMEGA 3 [Concomitant]
     Active Substance: OMEGA-3 FATTY ACIDS
  17. ARAVA [Suspect]
     Active Substance: LEFLUNOMIDE
     Indication: PULMONARY TOXICITY
     Route: 065
  18. SULFASALAZINE. [Suspect]
     Active Substance: SULFASALAZINE
     Indication: RHEUMATOID ARTHRITIS
     Route: 065
  19. BISOPROLOL [Concomitant]
     Active Substance: BISOPROLOL

REACTIONS (16)
  - Joint swelling [Unknown]
  - Cardiac failure congestive [Unknown]
  - Eye disorder [Unknown]
  - Vascular graft [Unknown]
  - Abdominal discomfort [Unknown]
  - Dyspnoea [Unknown]
  - Lung disorder [Unknown]
  - Peripheral swelling [Unknown]
  - Pulmonary toxicity [Unknown]
  - Sensitivity to weather change [Unknown]
  - Drug effect decreased [Unknown]
  - Drug ineffective [Unknown]
  - Arthralgia [Unknown]
  - Musculoskeletal pain [Unknown]
  - Arthritis [Not Recovered/Not Resolved]
  - Drug effect incomplete [Unknown]

NARRATIVE: CASE EVENT DATE: 20150729
